FAERS Safety Report 7638168-6 (Version None)
Quarter: 2011Q3

REPORT INFORMATION
  Report Type: 
  Country: None (occurrence: None)
  Receive Date: 20110727
  Receipt Date: 20110719
  Transmission Date: 20111222
  Serious: Yes (Hospitalization)
  Sender: FDA-Public Use
  Company Number: DE-JNJFOC-20110411264

PATIENT
  Age: 71 Year
  Sex: Male
  Weight: 98 kg

DRUGS (3)
  1. PREDNISOLONE [Concomitant]
     Indication: ANKYLOSING SPONDYLITIS
     Dates: start: 20100701
  2. METHOTREXATE [Concomitant]
     Indication: ANKYLOSING SPONDYLITIS
     Dates: start: 20100801
  3. SIMPONI [Suspect]
     Indication: ANKYLOSING SPONDYLITIS
     Route: 058
     Dates: start: 20110325, end: 20110612

REACTIONS (6)
  - ERYTHEMA [None]
  - DRUG INEFFECTIVE [None]
  - DIVERTICULITIS [None]
  - CARDIAC FAILURE [None]
  - RASH [None]
  - PAIN IN EXTREMITY [None]
